FAERS Safety Report 5114763-3 (Version None)
Quarter: 2006Q3

REPORT INFORMATION
  Report Type: 
  Country: None (occurrence: None)
  Receive Date: 20060922
  Receipt Date: 20060915
  Transmission Date: 20061208
  Serious: Yes (Disabling)
  Sender: FDA-Public Use
  Company Number: US-GDP-0613528

PATIENT
  Age: 45 Year
  Sex: Female

DRUGS (2)
  1. METROGEL [Suspect]
     Indication: ROSACEA
     Dosage: 1 APP BID TP
     Route: 061
  2. METROGEL [Suspect]
     Indication: ROSACEA
     Dates: start: 20040201

REACTIONS (4)
  - HEADACHE [None]
  - HYPOAESTHESIA [None]
  - NEUROPATHY PERIPHERAL [None]
  - PARAESTHESIA [None]
